FAERS Safety Report 9231461 (Version 2)
Quarter: 2013Q2

REPORT INFORMATION
  Report Type: Spontaneous
  Country: JP (occurrence: JP)
  Receive Date: 20130415
  Receipt Date: 20130429
  Transmission Date: 20140414
  Serious: No
  Sender: FDA-Public Use
  Company Number: JP-BRISTOL-MYERS SQUIBB COMPANY-18777730

PATIENT
  Age: 81 Year
  Sex: Female

DRUGS (13)
  1. ABILIFY TABS [Suspect]
     Indication: HYPOMANIA
     Dosage: UPTO 19DEC12.RESTART 20DEC-27DEC12
     Route: 048
     Dates: start: 20121123, end: 20121227
  2. FUROSEMIDE [Concomitant]
  3. MOSAPRIDE CITRATE [Concomitant]
  4. DIART [Concomitant]
  5. WARFARIN [Concomitant]
  6. EVISTA [Concomitant]
  7. ARTIST [Concomitant]
  8. SPIRONOLACTONE [Concomitant]
  9. REBAMIPIDE [Concomitant]
  10. SANPILO [Concomitant]
     Route: 047
  11. TRUSOPT [Concomitant]
     Route: 047
  12. HYALEIN [Concomitant]
  13. XALATAN [Concomitant]

REACTIONS (1)
  - Intraocular pressure increased [Recovered/Resolved]
